FAERS Safety Report 4518436-7 (Version None)
Quarter: 2004Q4

REPORT INFORMATION
  Report Type: 
  Country: None (occurrence: None)
  Receive Date: 20041202
  Receipt Date: 20041126
  Transmission Date: 20050328
  Serious: Yes (Hospitalization, Other)
  Sender: FDA-Public Use
  Company Number: 105242ISR

PATIENT
  Age: 55 Year
  Sex: Female

DRUGS (1)
  1. GLATIRAMER ACETATE [Suspect]
     Indication: MULTIPLE SCLEROSIS
     Dosage: SUBCUTANEOUS
     Route: 058
     Dates: start: 20040101

REACTIONS (8)
  - BREATH SOUNDS DECREASED [None]
  - CHEST PAIN [None]
  - CHEST X-RAY ABNORMAL [None]
  - DYSPNOEA [None]
  - ECCHYMOSIS [None]
  - GINGIVAL BLEEDING [None]
  - HAEMOPTYSIS [None]
  - IDIOPATHIC THROMBOCYTOPENIC PURPURA [None]
